FAERS Safety Report 4531191-X (Version None)
Quarter: 2004Q4

REPORT INFORMATION
  Report Type: 
  Country: None (occurrence: None)
  Receive Date: 20041216
  Receipt Date: 20041201
  Transmission Date: 20050328
  Serious: Yes (Hospitalization)
  Sender: FDA-Public Use
  Company Number: 2004AP05485

PATIENT
  Age: 59 Year
  Sex: Male
  Weight: 92.6 kg

DRUGS (6)
  1. IRESSA [Suspect]
     Indication: GLIOBLASTOMA MULTIFORME
     Dosage: 500 MG DAILY PO
     Route: 048
     Dates: start: 20040510
  2. RADIOTHERAPY [Suspect]
     Indication: GLIOBLASTOMA MULTIFORME
     Dosage: 30 FRACTIONS OF 2 GY GIVEN, TOTAL AMOUNT = 60 GY
     Dates: start: 20040518, end: 20040702
  3. BETAPRED [Concomitant]
  4. TETRALYSAL [Concomitant]
  5. DIFFERIN [Concomitant]
  6. LOPERAMIDE HCL [Concomitant]

REACTIONS (1)
  - CONVULSION [None]
